FAERS Safety Report 7557459-0 (Version None)
Quarter: 2011Q2

REPORT INFORMATION
  Report Type: 
  Country: None (occurrence: None)
  Receive Date: 20110616
  Receipt Date: 20110616
  Transmission Date: 20111010
  Serious: Yes (Other)
  Sender: FDA-Public Use
  Company Number: None

PATIENT
  Age: 71 Year
  Sex: Male
  Weight: 120.2032 kg

DRUGS (2)
  1. SIMVASTATIN [Suspect]
  2. SIMVASTATIN [Suspect]
     Indication: BLOOD CHOLESTEROL INCREASED
     Dosage: 80 MG ONCE A DAY PO
     Route: 048
     Dates: start: 20110310, end: 20110606

REACTIONS (5)
  - IMPAIRED HEALING [None]
  - SPINAL LAMINECTOMY [None]
  - PAIN [None]
  - LETHARGY [None]
  - MUSCULAR WEAKNESS [None]
